FAERS Safety Report 5792881-4 (Version None)
Quarter: 2008Q2

REPORT INFORMATION
  Report Type: 
  Country: None (occurrence: None)
  Receive Date: 20080627
  Receipt Date: 20080625
  Transmission Date: 20081010
  Serious: Yes (Hospitalization)
  Sender: FDA-Public Use
  Company Number: GB-BRISTOL-MYERS SQUIBB COMPANY-14241285

PATIENT
  Age: 42 Year
  Sex: Female

DRUGS (4)
  1. STAVUDINE [Suspect]
     Indication: HIV INFECTION
  2. LAMIVUDINE [Suspect]
     Indication: HIV INFECTION
  3. NEVIRAPINE [Suspect]
     Indication: HIV INFECTION
  4. CO-TRIMOXAZOLE [Suspect]
     Indication: HIV INFECTION

REACTIONS (2)
  - FANCONI SYNDROME [None]
  - LACTIC ACIDOSIS [None]
